FAERS Safety Report 12242120 (Version 5)
Quarter: 2016Q2

REPORT INFORMATION
  Report Type: Spontaneous
  Country: US (occurrence: US)
  Receive Date: 20160406
  Receipt Date: 20160506
  Transmission Date: 20160815
  Serious: No
  Sender: FDA-Public Use
  Company Number: US-PFIZER INC-2016180396

PATIENT
  Age: 69 Year
  Sex: Female

DRUGS (3)
  1. IBRANCE [Suspect]
     Active Substance: PALBOCICLIB
     Dosage: 125 MG, CYCLIC (125 MG DAILY FOR 21 DAYS, 7 DAYS OFF)
     Route: 048
     Dates: start: 20160322
  2. IBRANCE [Suspect]
     Active Substance: PALBOCICLIB
     Indication: BREAST CANCER METASTATIC
     Dosage: 125 MG, UNK
     Dates: start: 20160322, end: 20160419
  3. FASLODEX [Suspect]
     Active Substance: FULVESTRANT
     Dosage: 250 MG, UNK

REACTIONS (8)
  - Muscle spasms [Recovered/Resolved]
  - Disturbance in attention [Unknown]
  - Fatigue [Unknown]
  - Nausea [Unknown]
  - Musculoskeletal stiffness [Unknown]
  - Paraesthesia [Unknown]
  - Blood count abnormal [Unknown]
  - Dry mouth [Recovered/Resolved]
